FAERS Safety Report 4463802-1 (Version None)
Quarter: 2004Q4

REPORT INFORMATION
  Report Type: 
  Country: None (occurrence: None)
  Receive Date: 20041001
  Receipt Date: 20040813
  Transmission Date: 20050328
  Serious: Yes (Other)
  Sender: FDA-Public Use
  Company Number: 200412707JP

PATIENT
  Age: 65 Year
  Sex: Male
  Weight: 68 kg

DRUGS (2)
  1. AMARYL [Suspect]
     Indication: HYPERGLYCAEMIA
     Route: 048
     Dates: start: 20040518, end: 20040713
  2. EPADEL [Concomitant]
     Indication: ARTERIOSCLEROSIS
     Route: 048
     Dates: start: 20021129, end: 20040615

REACTIONS (1)
  - BLOOD CREATINE PHOSPHOKINASE INCREASED [None]
